FAERS Safety Report 8777536 (Version 1)
Quarter: 2012Q4

REPORT INFORMATION
  Report Type: 
  Country: US (occurrence: US)
  Receive Date: 20120907
  Receipt Date: 20120907
  Transmission Date: 20130627
  Serious: Yes (Hospitalization, Other)
  Sender: FDA-Public Use
  Company Number: US-ELI_LILLY_AND_COMPANY-US201208008876

PATIENT
  Sex: Female

DRUGS (4)
  1. HUMALOG 25% LISPRO, 75% NPL [Suspect]
     Indication: DIABETES MELLITUS
     Dosage: 12 u, bid
  2. HUMULIN REGULAR [Suspect]
     Indication: DIABETES MELLITUS
     Dosage: 7 u, prn
  3. ILETIN [Suspect]
     Indication: DIABETES MELLITUS
  4. ILETIN [Suspect]
     Indication: DIABETES MELLITUS

REACTIONS (3)
  - Blood glucose decreased [Unknown]
  - Blindness [Not Recovered/Not Resolved]
  - Retinal haemorrhage [Unknown]
